FAERS Safety Report 25832382 (Version 1)
Quarter: 2025Q3

REPORT INFORMATION
  Report Type: Spontaneous
  Country: RU (occurrence: RU)
  Receive Date: 20250922
  Receipt Date: 20250922
  Transmission Date: 20251021
  Serious: Yes (Other)
  Sender: TAKEDA
  Company Number: RU-TAKEDA-2025TUS080166

PATIENT
  Age: 27 Year
  Sex: Male

DRUGS (4)
  1. COLCHICINE [Suspect]
     Active Substance: COLCHICINE
     Indication: Pericarditis
     Dosage: 1 MILLIGRAM, QD
  2. PREDNISOLONE [Suspect]
     Active Substance: PREDNISOLONE
     Indication: Pericarditis
     Dosage: 50 MILLIGRAM, QD
  3. PREDNISOLONE [Suspect]
     Active Substance: PREDNISOLONE
     Dosage: 40 MILLIGRAM, QD
  4. IBUPROFEN [Concomitant]
     Active Substance: IBUPROFEN
     Indication: Pericarditis
     Dosage: 1200 MILLIGRAM, QD

REACTIONS (3)
  - Cushing^s syndrome [Unknown]
  - Hypokalaemia [Unknown]
  - Leukocytosis [Unknown]
